FAERS Safety Report 4992449-3 (Version None)
Quarter: 2006Q2

REPORT INFORMATION
  Report Type: 
  Country: None (occurrence: None)
  Receive Date: 20060502
  Receipt Date: 20060420
  Transmission Date: 20061013
  Serious: Yes (Hospitalization)
  Sender: FDA-Public Use
  Company Number: HQWYE640803FEB06

PATIENT
  Age: 23 Month
  Sex: Female

DRUGS (7)
  1. MYLOTARG [Suspect]
     Indication: ACUTE MYELOID LEUKAEMIA RECURRENT
     Dosage: SEE IMAGE
     Route: 041
     Dates: start: 20051124, end: 20051124
  2. FUNGIZONE [Concomitant]
  3. POLYMYXIN B SULFATE (POLYMYXIN B SULFATE) [Concomitant]
  4. ALLOID (SODIUM ALGINATE) [Concomitant]
  5. BACTRIM [Concomitant]
  6. BIOFERMIN R (STREPTOCOCCUS FAECALIS) [Concomitant]
  7. TIENAM (CILASTATIN/IMIPENEM) [Concomitant]

REACTIONS (17)
  - ABDOMINAL DISTENSION [None]
  - ANAEMIA [None]
  - BLOOD LACTATE DEHYDROGENASE [None]
  - BONE PAIN [None]
  - CHILLS [None]
  - DIARRHOEA [None]
  - DISSEMINATED INTRAVASCULAR COAGULATION [None]
  - HYPOALBUMINAEMIA [None]
  - HYPOKALAEMIA [None]
  - LYMPHOCYTE MORPHOLOGY ABNORMAL [None]
  - PLATELET COUNT DECREASED [None]
  - PYREXIA [None]
  - THIRST [None]
  - TUMOUR LYSIS SYNDROME [None]
  - URINE OUTPUT DECREASED [None]
  - VOMITING [None]
  - WHITE BLOOD CELL COUNT DECREASED [None]
